FAERS Safety Report 6296416-1 (Version None)
Quarter: 2009Q3

REPORT INFORMATION
  Report Type: 
  Country: None (occurrence: None)
  Receive Date: 20090803
  Receipt Date: 20090803
  Transmission Date: 20100115
  Serious: Yes (Life-Threatening)
  Sender: FDA-Public Use
  Company Number: None

PATIENT
  Age: 34 Year
  Sex: Female
  Weight: 165.5629 kg

DRUGS (1)
  1. ZOLOFT [Suspect]
     Indication: DEPRESSION
     Dosage: 200MG 1 X DAY PO
     Route: 048
     Dates: start: 20000212, end: 20070815

REACTIONS (22)
  - ABDOMINAL DISTENSION [None]
  - ANAEMIA [None]
  - ANXIETY [None]
  - BLOOD GLUCOSE INCREASED [None]
  - DIZZINESS [None]
  - DRUG WITHDRAWAL SYNDROME [None]
  - DYSPEPSIA [None]
  - HALLUCINATION, AUDITORY [None]
  - HYPERHIDROSIS [None]
  - HYPERTENSION [None]
  - MENSTRUAL DISORDER [None]
  - MIGRAINE [None]
  - MUSCLE SPASMS [None]
  - NAUSEA [None]
  - NECK PAIN [None]
  - OVERDOSE [None]
  - PALPITATIONS [None]
  - PYREXIA [None]
  - REFUSAL OF TREATMENT BY PATIENT [None]
  - SUICIDAL IDEATION [None]
  - TREMOR [None]
  - VOMITING [None]
